FAERS Safety Report 25551165 (Version 1)
Quarter: 2025Q3

REPORT INFORMATION
  Report Type: Spontaneous
  Country: US (occurrence: US)
  Receive Date: 20250714
  Receipt Date: 20250714
  Transmission Date: 20251020
  Serious: Yes (Other)
  Sender: DR REDDYS
  Company Number: US-DRL-USA-USA/2025/07/010183

PATIENT
  Age: 60 Year
  Sex: Female

DRUGS (5)
  1. PEMETREXED [Suspect]
     Active Substance: PEMETREXED
     Indication: Adenocarcinoma
  2. CYCLOSPORINE [Suspect]
     Active Substance: CYCLOSPORINE
     Indication: Immunosuppressant drug therapy
  3. CARBOPLATIN [Suspect]
     Active Substance: CARBOPLATIN
     Indication: Adenocarcinoma
  4. EVEROLIMUS [Concomitant]
     Active Substance: EVEROLIMUS
     Indication: Immunosuppressant drug therapy
  5. PREDNISONE [Concomitant]
     Active Substance: PREDNISONE
     Indication: Immunosuppressant drug therapy

REACTIONS (4)
  - Pancytopenia [Unknown]
  - Acute kidney injury [Unknown]
  - Pleural effusion [Unknown]
  - Drug ineffective [Unknown]
